FAERS Safety Report 7499899-4 (Version None)
Quarter: 2011Q2

REPORT INFORMATION
  Report Type: 
  Country: None (occurrence: None)
  Receive Date: 20110524
  Receipt Date: 20110308
  Transmission Date: 20111010
  Serious: No
  Sender: FDA-Public Use
  Company Number: US-NOVEN-11US001947

PATIENT
  Sex: Female
  Weight: 32.653 kg

DRUGS (2)
  1. DAYTRANA [Suspect]
     Indication: ATTENTION DEFICIT/HYPERACTIVITY DISORDER
     Dosage: 10 MG, UNKNOWN
     Route: 062
     Dates: start: 20110222
  2. FLUOXETINE [Concomitant]
     Indication: ANXIETY
     Dosage: 20 MG, UNKNOWN
     Route: 048
     Dates: start: 20100701

REACTIONS (3)
  - NO ADVERSE EVENT [None]
  - DRUG ADMINISTRATION ERROR [None]
  - PRODUCT QUALITY ISSUE [None]
